FAERS Safety Report 8815525 (Version 3)
Quarter: 2013Q1

REPORT INFORMATION
  Report Type: Report from Study
  Country: JP (occurrence: JP)
  Receive Date: 20120928
  Receipt Date: 20130311
  Transmission Date: 20140127
  Serious: Yes (Death)
  Sender: FDA-Public Use
  Company Number: JP-EISAI INC-E2020-11439-CLI-JP

PATIENT
  Age: 89 Year
  Sex: Male

DRUGS (4)
  1. ARICEPT [Suspect]
     Indication: DEMENTIA ALZHEIMER^S TYPE
     Route: 048
     Dates: start: 20110315, end: 20110321
  2. ARICEPT [Suspect]
     Route: 048
     Dates: start: 20110322, end: 20120803
  3. CO-DIO [Concomitant]
     Dosage: 1 DF X 1
     Route: 048
     Dates: start: 20100511, end: 20120803
  4. CALBLOCK [Concomitant]
     Dosage: 16 MG X 1
     Route: 048
     Dates: end: 20120803

REACTIONS (1)
  - Fall [Fatal]
